FAERS Safety Report 9369692 (Version 1)
Quarter: 2013Q2

REPORT INFORMATION
  Report Type: Spontaneous
  Country: IT (occurrence: IT)
  Receive Date: 20130626
  Receipt Date: 20130626
  Transmission Date: 20140414
  Serious: Yes (Other)
  Sender: FDA-Public Use
  Company Number: IT-JNJFOC-20130610606

PATIENT
  Sex: Female

DRUGS (1)
  1. PEVARYL [Suspect]
     Indication: EAR INFECTION
     Dosage: 2 DROPS AT MORNING AND 2 AT NIGHT, IN THE RIGHT EAR
     Route: 001

REACTIONS (3)
  - Pain [Unknown]
  - Pruritus [Unknown]
  - Deafness [Unknown]
